FAERS Safety Report 18583195 (Version 1)
Quarter: 2020Q4

REPORT INFORMATION
  Report Type: Other
  Country: IT (occurrence: IT)
  Receive Date: 20201206
  Receipt Date: 20201206
  Transmission Date: 20210114
  Serious: Yes (Other)
  Sender: FDA-Public Use
  Company Number: IT-SERVIER-S20012096

PATIENT

DRUGS (14)
  1. PEGASPARGASE [Suspect]
     Active Substance: PEGASPARGASE
     Indication: OFF LABEL USE
  2. TN UNSPECIFIED [METHOTREXATE] [Suspect]
     Active Substance: METHOTREXATE
     Indication: T-CELL LYMPHOMA
     Route: 065
  3. TN UNSPECIFIED [GEMCITABINE HYDROCHLORIDE] [Suspect]
     Active Substance: GEMCITABINE HYDROCHLORIDE
     Indication: T-CELL LYMPHOMA
     Route: 065
  4. TN UNSPECIFIED [VINCRISTINE SULFATE] [Suspect]
     Active Substance: VINCRISTINE SULFATE
     Indication: T-CELL LYMPHOMA
     Route: 065
  5. TN UNSPECIFIED [CYCLOPHOSPHAMIDE] [Suspect]
     Active Substance: CYCLOPHOSPHAMIDE
     Indication: T-CELL LYMPHOMA
     Route: 065
  6. TN UNSPECIFIED [ETOPOSIDE] [Suspect]
     Active Substance: ETOPOSIDE
     Indication: T-CELL LYMPHOMA
     Route: 065
  7. TN UNSPECIFIED [LAMBROLIZUMAB] [Suspect]
     Active Substance: LAMBROLIZUMAB
     Indication: T-CELL LYMPHOMA
     Route: 065
  8. PEGASPARGASE [Suspect]
     Active Substance: PEGASPARGASE
     Indication: T-CELL LYMPHOMA
     Route: 065
  9. TN UNSPECIFIED [RITUXIMAB] [Suspect]
     Active Substance: RITUXIMAB
     Indication: T-CELL LYMPHOMA
     Route: 065
  10. TN UNSPECIFIED [PREDNISOLONE] [Suspect]
     Active Substance: PREDNISOLONE
     Indication: T-CELL LYMPHOMA
     Route: 065
  11. TN UNSPECIFIED [CISPLATIN] [Suspect]
     Active Substance: CISPLATIN
     Indication: T-CELL LYMPHOMA
     Route: 065
  12. TN UNSPECIFIED [ASPARAGINASE] [Suspect]
     Active Substance: ASPARAGINASE
     Indication: T-CELL LYMPHOMA
     Route: 065
  13. TN UNSPECIFIED [DEXAMETHASONE] [Suspect]
     Active Substance: DEXAMETHASONE
     Indication: T-CELL LYMPHOMA
     Route: 065
  14. TN UNSPECIFIED [IFOSFAMIDE] [Suspect]
     Active Substance: IFOSFAMIDE
     Indication: T-CELL LYMPHOMA
     Route: 065

REACTIONS (1)
  - COVID-19 pneumonia [Recovered/Resolved]

NARRATIVE: CASE EVENT DATE: 2020
